FAERS Safety Report 8610683-8 (Version None)
Quarter: 2012Q3

REPORT INFORMATION
  Report Type: 
  Country: None (occurrence: None)
  Receive Date: 20120808
  Receipt Date: 20120731
  Transmission Date: 20120928
  Serious: Yes (Hospitalization)
  Sender: FDA-Public Use
  Company Number: 137290

PATIENT
  Age: 53 Year
  Sex: Male
  Weight: 86 kg

DRUGS (1)
  1. LEUCOVORIN CALCIUM [Suspect]

REACTIONS (11)
  - PNEUMONIA [None]
  - OESOPHAGEAL ADENOCARCINOMA [None]
  - CYANOSIS [None]
  - ASCITES [None]
  - PARAESTHESIA [None]
  - METASTASES TO LIVER [None]
  - METASTASES TO PERITONEUM [None]
  - PLEURAL EFFUSION [None]
  - PANCYTOPENIA [None]
  - ANAPHYLACTIC REACTION [None]
  - NEOPLASM PROGRESSION [None]
